FAERS Safety Report 24226301 (Version 2)
Quarter: 2024Q3

REPORT INFORMATION
  Report Type: Report from Study
  Country: US (occurrence: US)
  Receive Date: 20240820
  Receipt Date: 20240826
  Transmission Date: 20241017
  Serious: Yes (Hospitalization)
  Sender: ABBVIE
  Company Number: US-ABBVIE-5878882

PATIENT
  Sex: Female

DRUGS (1)
  1. HUMIRA [Suspect]
     Active Substance: ADALIMUMAB
     Indication: Colitis ulcerative
     Dosage: CITRATE FREE
     Route: 058
     Dates: start: 20220426

REACTIONS (9)
  - Haemorrhage [Not Recovered/Not Resolved]
  - Wound [Unknown]
  - Drug resistance [Unknown]
  - Drug ineffective [Unknown]
  - Hypersensitivity [Unknown]
  - Drug specific antibody present [Not Recovered/Not Resolved]
  - Drug intolerance [Unknown]
  - Influenza [Not Recovered/Not Resolved]
  - Drug hypersensitivity [Not Recovered/Not Resolved]
